FAERS Safety Report 25515332 (Version 1)
Quarter: 2025Q3

REPORT INFORMATION
  Report Type: Spontaneous
  Country: CN (occurrence: CN)
  Receive Date: 20250704
  Receipt Date: 20250704
  Transmission Date: 20251020
  Serious: Yes (Hospitalization, Other)
  Sender: BAXTER
  Company Number: None

PATIENT
  Age: 55 Year
  Sex: Female

DRUGS (2)
  1. CYCLOPHOSPHAMIDE [Suspect]
     Active Substance: CYCLOPHOSPHAMIDE
     Indication: Acute leukaemia
     Dosage: 1 G,QD
     Route: 041
     Dates: start: 20250410, end: 20250424
  2. PIRARUBICIN HYDROCHLORIDE [Suspect]
     Active Substance: PIRARUBICIN HYDROCHLORIDE
     Indication: Acute leukaemia
     Dosage: 40 MG, QD
     Route: 041
     Dates: start: 20250410, end: 20250427

REACTIONS (19)
  - Pseudomembranous colitis [Recovering/Resolving]
  - Diarrhoea [Recovering/Resolving]
  - Pyrexia [Recovered/Resolved]
  - Vomiting [Recovering/Resolving]
  - Myelosuppression [Recovering/Resolving]
  - Platelet count decreased [Recovering/Resolving]
  - Pancytopenia [Recovering/Resolving]
  - White blood cell count decreased [Recovering/Resolving]
  - Full blood count decreased [Unknown]
  - Cytopenia [Unknown]
  - Anaemia [Unknown]
  - Hyperplasia [Unknown]
  - Blast cells present [Unknown]
  - Coagulation test abnormal [Unknown]
  - Rales [Unknown]
  - Productive cough [Recovering/Resolving]
  - Tachypnoea [Recovering/Resolving]
  - Asthenia [Unknown]
  - Cough [Recovering/Resolving]

NARRATIVE: CASE EVENT DATE: 20250414
